FAERS Safety Report 6698626-8 (Version None)
Quarter: 2010Q2

REPORT INFORMATION
  Report Type: 
  Country: None (occurrence: None)
  Receive Date: 20100427
  Receipt Date: 20100416
  Transmission Date: 20101027
  Serious: Yes (Other)
  Sender: FDA-Public Use
  Company Number: US-PFIZER INC-2010022364

PATIENT
  Sex: Female
  Weight: 77.1 kg

DRUGS (12)
  1. SUTENT [Suspect]
     Indication: RENAL CANCER
     Dosage: 50 MG, UNK
     Dates: start: 20091001
  2. SUTENT [Suspect]
     Dosage: 37.5 MG, UNK
  3. DIOVAN HCT [Concomitant]
     Indication: HYPERTENSION
     Dosage: 130/12.5 MG
  4. METOPROLOL TARTRATE [Concomitant]
     Dosage: 50 MG, UNK
  5. EVISTA [Concomitant]
     Dosage: 60 MG, UNK
  6. FUROSEMIDE [Concomitant]
     Dosage: 20 MG, UNK
  7. ALPRAZOLAM [Concomitant]
     Indication: STRESS
     Dosage: 0.25 MG, UNK
  8. ADVAIR DISKUS 100/50 [Concomitant]
     Dosage: 100/50 MG
  9. OMEPRAZOLE [Concomitant]
     Indication: GASTROOESOPHAGEAL REFLUX DISEASE
     Dosage: 20 MG, UNK
  10. LEVAQUIN [Concomitant]
     Indication: SINUSITIS
     Dosage: 250 MG, UNK
  11. TYLENOL-500 [Concomitant]
     Indication: SINUSITIS
     Dosage: UNK
  12. CENTRUM SILVER [Concomitant]
     Dosage: UNK

REACTIONS (5)
  - DIARRHOEA [None]
  - HAIR COLOUR CHANGES [None]
  - RASH MACULAR [None]
  - STOMATITIS [None]
  - THYROID FUNCTION TEST ABNORMAL [None]
